FAERS Safety Report 12208992 (Version 1)
Quarter: 2016Q1

REPORT INFORMATION
  Report Type: Spontaneous
  Country: US (occurrence: US)
  Receive Date: 20160324
  Receipt Date: 20160324
  Transmission Date: 20160526
  Serious: No
  Sender: FDA-Public Use
  Company Number: US-SHIONOGI, INC-2016000061

PATIENT
  Sex: Female
  Weight: 92.52 kg

DRUGS (7)
  1. OSPHENA [Suspect]
     Active Substance: OSPEMIFENE
     Indication: DYSPAREUNIA
     Dosage: 60 MG, QD
     Route: 048
     Dates: start: 201409
  2. NAPROXEN. [Concomitant]
     Active Substance: NAPROXEN
     Indication: PAIN
  3. OSPHENA [Suspect]
     Active Substance: OSPEMIFENE
     Indication: DISCOMFORT
  4. OSPHENA [Suspect]
     Active Substance: OSPEMIFENE
     Indication: PAIN
  5. NAPROXEN. [Concomitant]
     Active Substance: NAPROXEN
     Indication: DISCOMFORT
  6. BABY ASPIRIN [Concomitant]
     Active Substance: ASPIRIN
     Indication: PRODUCT USED FOR UNKNOWN INDICATION
     Dosage: UNK
     Route: 065
  7. NAPROXEN. [Concomitant]
     Active Substance: NAPROXEN
     Indication: ARTHRITIS
     Dosage: UNK, AS NECESSARY
     Route: 065
     Dates: start: 2015

REACTIONS (2)
  - Drug prescribing error [Unknown]
  - Weight increased [Not Recovered/Not Resolved]

NARRATIVE: CASE EVENT DATE: 2015
